FAERS Safety Report 4488741-1 (Version None)
Quarter: 2004Q4

REPORT INFORMATION
  Report Type: 
  Country: None (occurrence: None)
  Receive Date: 20041025
  Receipt Date: 20041011
  Transmission Date: 20050328
  Serious: Yes (Hospitalization)
  Sender: FDA-Public Use
  Company Number: 044-0981-M0100447

PATIENT
  Age: 48 Year
  Sex: Male
  Weight: 77 kg

DRUGS (5)
  1. ATORVASTATIN CALCIUM [Suspect]
     Indication: ISCHAEMIC HEART DISEASE PROPHYLAXIS
     Dosage: 10 MG (1 IN 1 D), ORAL
     Route: 048
     Dates: start: 19990111, end: 20040318
  2. ATENOLOL [Concomitant]
  3. SALBUTAMOL (SALBUTAMOL) [Concomitant]
  4. PRAVASTATIN [Concomitant]
  5. ASPIRIN [Concomitant]

REACTIONS (4)
  - ANAL FISSURE [None]
  - ANAL FISTULA [None]
  - PERIANAL ABSCESS [None]
  - SKIN DISORDER [None]
